FAERS Safety Report 16793471 (Version 1)
Quarter: 2019Q3

REPORT INFORMATION
  Report Type: Spontaneous
  Country: ES (occurrence: ES)
  Receive Date: 20190911
  Receipt Date: 20190911
  Transmission Date: 20191005
  Serious: Yes (Other)
  Sender: FDA-Public Use
  Company Number: ES-ASTRAZENECA-2019SF25349

PATIENT
  Age: 4 Month
  Sex: Male
  Weight: 8.1 kg

DRUGS (2)
  1. OMEPRAZOL [Suspect]
     Active Substance: OMEPRAZOLE
     Indication: GASTROOESOPHAGEAL REFLUX DISEASE
     Dosage: THE MAGISTRAL FORMULA OF OMEPRAZOLE THAT WAS BEING ADMINISTERED WAS OF 3.5 MG/ML, ORAL SUSPENSION...
     Route: 048
     Dates: start: 20190521, end: 20190607
  2. MINOXIDIL. [Suspect]
     Active Substance: MINOXIDIL
     Route: 065
     Dates: start: 20190521, end: 20190607

REACTIONS (2)
  - Hypertrichosis [Unknown]
  - Product formulation issue [Unknown]

NARRATIVE: CASE EVENT DATE: 20190521
